FAERS Safety Report 15366187 (Version 2)
Quarter: 2018Q3

REPORT INFORMATION
  Report Type: Spontaneous
  Country: FR (occurrence: FR)
  Receive Date: 20180910
  Receipt Date: 20180925
  Transmission Date: 20181010
  Serious: Yes (Life-Threatening, Hospitalization)
  Sender: FDA-Public Use
  Company Number: FR-MYLANLABS-2018M1066034

PATIENT

DRUGS (11)
  1. NAPROXEN. [Suspect]
     Active Substance: NAPROXEN
     Indication: PRODUCT USED FOR UNKNOWN INDICATION
     Dosage: UNK (1 TABLET DAILY)
  2. ATORVASTATIN MYLAN [Suspect]
     Active Substance: ATORVASTATIN
     Dosage: 10 MG, QD (1/DAY), ON THE EVENING
     Route: 048
     Dates: start: 20150922, end: 20160404
  3. APRANAX                            /00256201/ [Suspect]
     Active Substance: NAPROXEN
     Indication: PRODUCT USED FOR UNKNOWN INDICATION
     Dosage: UNK
     Route: 065
  4. FLUVASTATIN MYLAN [Suspect]
     Active Substance: FLUVASTATIN SODIUM
     Dosage: UNK (1 CAPSULE DAILY)
     Dates: start: 20110201, end: 20150922
  5. ANTALNOX [Suspect]
     Active Substance: NAPROXEN SODIUM
     Indication: BACK PAIN
     Dosage: 550 MG, BID (2/DAY) /  TREATMENT DURATION OF UNKNOWN DAYS REPORTED IN THE ANSM REPORT
     Route: 048
     Dates: start: 20160311, end: 20160316
  6. MELOXICAM. [Suspect]
     Active Substance: MELOXICAM
     Indication: BACK PAIN
     Dosage: 15 MG, TID (3/DAY)/ TREATMENT DURATION OF 2?3 DAYS REPORTED IN THE ANSM REPORT
     Route: 048
     Dates: start: 20160301, end: 20160305
  7. SECTRAL [Concomitant]
     Active Substance: ACEBUTOLOL HYDROCHLORIDE
     Indication: HYPERTENSION
     Dosage: 100 MG, QD (1/DAY), ON MORNING
     Route: 048
  8. FLUVASTATIN MYLAN [Suspect]
     Active Substance: FLUVASTATIN SODIUM
     Indication: HYPERCHOLESTEROLAEMIA
     Dosage: UNK, FROM AT LEAST APR?2014 ? BEFORE ATORVASTATINE TREATMENT
     Route: 065
  9. ALDACTAZINE [Concomitant]
     Active Substance: ALTHIAZIDE\SPIRONOLACTONE
     Indication: HYPERTENSION
     Dosage: 10 MG, QD (1/DAY)/ FREQUENCY PRN IN THE ANSM REPORT
     Route: 048
     Dates: end: 20160404
  10. ATORVASTATIN MYLAN [Suspect]
     Active Substance: ATORVASTATIN
     Indication: HYPERCHOLESTEROLAEMIA
     Dosage: 10 MG, QD (1/DAY), ON THE EVENING
     Route: 048
     Dates: start: 201508, end: 20160404
  11. RAMIPRIL. [Concomitant]
     Active Substance: RAMIPRIL
     Indication: HYPERTENSION
     Dosage: 1.25 MG, QD (1/DAY) / FREQUENCY PRN IN THE ANSM REPORT
     Route: 048
     Dates: end: 20160404

REACTIONS (1)
  - Hepatitis fulminant [Recovered/Resolved with Sequelae]

NARRATIVE: CASE EVENT DATE: 20160315
